FAERS Safety Report 12101575 (Version 3)
Quarter: 2016Q2

REPORT INFORMATION
  Report Type: Report from Study
  Country: US (occurrence: US)
  Receive Date: 20160222
  Receipt Date: 20160405
  Transmission Date: 20160815
  Serious: Yes (Disabling)
  Sender: FDA-Public Use
  Company Number: PHEH2016US003780

PATIENT
  Sex: Male

DRUGS (1)
  1. COSENTYX [Suspect]
     Active Substance: SECUKINUMAB
     Indication: PSORIASIS
     Dosage: 300 MG, QMO
     Route: 058
     Dates: start: 20151008, end: 20160107

REACTIONS (4)
  - Blister [Unknown]
  - Dry skin [Unknown]
  - Psoriasis [Not Recovered/Not Resolved]
  - Nail growth abnormal [Unknown]
